FAERS Safety Report 8334113-9 (Version None)
Quarter: 2012Q2

REPORT INFORMATION
  Report Type: 
  Country: None (occurrence: None)
  Receive Date: 20120503
  Receipt Date: 20120418
  Transmission Date: 20120825
  Serious: Yes (Hospitalization, Other)
  Sender: FDA-Public Use
  Company Number: US-ROCHE-784684

PATIENT
  Sex: Female
  Weight: 61.29 kg

DRUGS (2)
  1. MICROGESTIN 1.5/30 [Concomitant]
  2. ACCUTANE [Suspect]
     Indication: ACNE
     Route: 065
     Dates: start: 19980501, end: 19980901

REACTIONS (7)
  - SMALL INTESTINAL OBSTRUCTION [None]
  - HEADACHE [None]
  - ARTHRALGIA [None]
  - INFLAMMATORY BOWEL DISEASE [None]
  - COLITIS ULCERATIVE [None]
  - STRESS [None]
  - XEROSIS [None]
